FAERS Safety Report 5506564-9 (Version None)
Quarter: 2007Q4

REPORT INFORMATION
  Report Type: 
  Country: None (occurrence: None)
  Receive Date: 20071101
  Receipt Date: 20071025
  Transmission Date: 20080405
  Serious: Yes (Death)
  Sender: FDA-Public Use
  Company Number: 0710-SPO-VANT-0184

PATIENT
  Age: 95 Year
  Sex: Male

DRUGS (4)
  1. VANTAS [Suspect]
     Indication: PROSTATE CANCER
     Dosage: 50 MG, 1 IN 1 Y, SUB Q. IMPLANT
  2. HYZAAR [Concomitant]
  3. KCL SUPPLEMENT (POTASSIUM CHLORIDE) [Concomitant]
  4. FOLIC ACID [Concomitant]

REACTIONS (2)
  - SHOCK [None]
  - VOMITING [None]
